FAERS Safety Report 8886551 (Version 3)
Quarter: 2013Q1

REPORT INFORMATION
  Report Type: Report from Study
  Country: US (occurrence: US)
  Receive Date: 20121105
  Receipt Date: 20130131
  Transmission Date: 20140127
  Serious: Yes (Hospitalization)
  Sender: FDA-Public Use
  Company Number: US-ABBOTT-12P-163-1002935-00

PATIENT
  Sex: Male

DRUGS (3)
  1. HUMIRA [Suspect]
     Indication: PSORIASIS
     Dates: start: 201202, end: 201208
  2. HUMIRA [Suspect]
     Dates: start: 20130118
  3. UNKNOWN MEDICATION [Concomitant]
     Indication: BACK PAIN

REACTIONS (3)
  - Skin infection [Unknown]
  - Psoriasis [Unknown]
  - Psoriatic arthropathy [Unknown]
